FAERS Safety Report 8025126-5 (Version None)
Quarter: 2011Q4

REPORT INFORMATION
  Report Type: 
  Country: None (occurrence: None)
  Receive Date: 20111130
  Receipt Date: 20110126
  Transmission Date: 20120403
  Serious: Yes (Disabling)
  Sender: FDA-Public Use
  Company Number: 806939

PATIENT
  Sex: Male

DRUGS (1)
  1. BUPIVACAINE HCL [Suspect]
     Indication: ANALGESIC THERAPY
     Dosage: CONTINUOUS INJECTION, VIA A PAIN PUMP OTHER
     Dates: start: 20080101

REACTIONS (1)
  - CHONDROLYSIS [None]
